FAERS Safety Report 21510161 (Version 1)
Quarter: 2022Q4

REPORT INFORMATION
  Report Type: Spontaneous
  Country: US (occurrence: US)
  Receive Date: 20221026
  Receipt Date: 20221026
  Transmission Date: 20230113
  Serious: No
  Sender: FDA-Public Use
  Company Number: US-JAZZ-2022-US-023840

PATIENT
  Age: 39 Year
  Sex: Female

DRUGS (8)
  1. XYWAV [Suspect]
     Active Substance: CALCIUM OXYBATE\MAGNESIUM OXYBATE\POTASSIUM OXYBATE\SODIUM OXYBATE
     Indication: Narcolepsy
     Dosage: 4.5 GRAM, QH
     Route: 048
  2. DEXTROAMPHETAMINE SACCHARATE [Suspect]
     Active Substance: DEXTROAMPHETAMINE SACCHARATE
     Indication: Product used for unknown indication
  3. ESCITALOPRAM [Concomitant]
     Active Substance: ESCITALOPRAM OXALATE
  4. METOCLOPRAMIDE [Concomitant]
     Active Substance: METOCLOPRAMIDE
  5. ONDANSETRON HYDROCHLORIDE [Concomitant]
     Active Substance: ONDANSETRON HYDROCHLORIDE
  6. DICYCLOMINE HYDROCHLORIDE [Concomitant]
     Active Substance: DICYCLOMINE HYDROCHLORIDE
  7. HYDROXYZINE [Concomitant]
     Active Substance: HYDROXYZINE HYDROCHLORIDE
  8. PREGABALIN [Concomitant]
     Active Substance: PREGABALIN

REACTIONS (8)
  - Tachycardia [Unknown]
  - Withdrawal syndrome [Unknown]
  - Hypertension [Recovered/Resolved]
  - Tremor [Recovered/Resolved]
  - Diarrhoea [Unknown]
  - Nervousness [Unknown]
  - Somnambulism [Unknown]
  - Product use issue [Unknown]
